FAERS Safety Report 21796892 (Version 1)
Quarter: 2022Q4

REPORT INFORMATION
  Report Type: Spontaneous
  Country: US (occurrence: US)
  Receive Date: 20221230
  Receipt Date: 20221230
  Transmission Date: 20230113
  Serious: No
  Sender: FDA-Public Use
  Company Number: US-BRISTOL-MYERS SQUIBB COMPANY-2022-160081

PATIENT
  Age: 79 Year
  Sex: Male
  Weight: 77.56 kg

DRUGS (1)
  1. REVLIMID [Suspect]
     Active Substance: LENALIDOMIDE
     Indication: Mantle cell lymphoma
     Dosage: DAILY FOR 21 DAYS
     Route: 048
     Dates: start: 20221201, end: 20221228

REACTIONS (1)
  - Localised infection [Unknown]

NARRATIVE: CASE EVENT DATE: 20221221
